FAERS Safety Report 10213670 (Version 1)
Quarter: 2014Q2

REPORT INFORMATION
  Report Type: Spontaneous
  Country: US (occurrence: None)
  Receive Date: 20140602
  Receipt Date: 20140602
  Transmission Date: 20141212
  Serious: Yes (Disabling)
  Sender: FDA-Public Use
  Company Number: None

PATIENT
  Age: 75 Year
  Sex: Female
  Weight: 47.63 kg

DRUGS (1)
  1. ADVIL [Suspect]
     Indication: PERIODONTAL OPERATION

REACTIONS (10)
  - Malaise [None]
  - Rash [None]
  - Eye disorder [None]
  - Skin wrinkling [None]
  - Erythema [None]
  - Pruritus [None]
  - Burning sensation [None]
  - Skin tightness [None]
  - Swelling [None]
  - Abdominal pain upper [None]
